FAERS Safety Report 5427908-2 (Version None)
Quarter: 2007Q3

REPORT INFORMATION
  Report Type: 
  Country: None (occurrence: None)
  Receive Date: 20070731
  Receipt Date: 20070518
  Transmission Date: 20080115
  Serious: No
  Sender: FDA-Public Use
  Company Number: US200705005809

PATIENT
  Sex: Female

DRUGS (2)
  1. BYETTA [Suspect]
     Dosage: 5 UG, SUBCUTANEOUS
     Route: 058
     Dates: start: 20061101, end: 20061201
  2. EXENATIDE PEN, DISPOSABLE DEVICE [Concomitant]

REACTIONS (2)
  - MALAISE [None]
  - MYALGIA [None]
